FAERS Safety Report 10207566 (Version 1)
Quarter: 2014Q2

REPORT INFORMATION
  Report Type: Report from Study
  Country: AR (occurrence: AR)
  Receive Date: 20140530
  Receipt Date: 20140530
  Transmission Date: 20141212
  Serious: Yes (Other)
  Sender: FDA-Public Use
  Company Number: AR-ABBVIE-14P-007-1241274-00

PATIENT
  Age: 46 Year
  Sex: Male

DRUGS (2)
  1. HUMIRA [Suspect]
     Indication: CROHN^S DISEASE
     Route: 058
     Dates: start: 20120315, end: 201208
  2. HUMIRA [Suspect]
     Route: 058
     Dates: start: 201303

REACTIONS (2)
  - Pseudolymphoma [Recovered/Resolved]
  - Pruritus [Recovered/Resolved]
